FAERS Safety Report 11859740 (Version 2)
Quarter: 2016Q1

REPORT INFORMATION
  Report Type: Report from Study
  Country: CH (occurrence: CH)
  Receive Date: 20151222
  Receipt Date: 20160126
  Transmission Date: 20160526
  Serious: Yes (Hospitalization)
  Sender: FDA-Public Use
  Company Number: CH-ROCHE-1676630

PATIENT

DRUGS (5)
  1. TRASTUZUMAB [Suspect]
     Active Substance: TRASTUZUMAB
     Indication: HER-2 POSITIVE BREAST CANCER
     Dosage: MAINTENANCE DOSE?LAST DOSE BEFORE SAE: 26/AUG/2015
     Route: 042
  2. TRASTUZUMAB EMTANSINE [Suspect]
     Active Substance: ADO-TRASTUZUMAB EMTANSINE
     Indication: HER-2 POSITIVE BREAST CANCER
     Dosage: LAST DOSE BEFORE SAE: 05/NOV/2015
     Route: 042
     Dates: start: 20150925
  3. TRASTUZUMAB [Suspect]
     Active Substance: TRASTUZUMAB
     Dosage: LOADING DOSE
     Route: 042
     Dates: start: 20150313
  4. PERTUZUMAB [Suspect]
     Active Substance: PERTUZUMAB
     Indication: HER-2 POSITIVE BREAST CANCER
     Dosage: MAINTENANCE DOSE?LAST DOSE BEFORE SAE: 26/AUG/2015
     Route: 042
  5. PERTUZUMAB [Suspect]
     Active Substance: PERTUZUMAB
     Dosage: LOADING DOSE
     Route: 042
     Dates: start: 20150313

REACTIONS (1)
  - Surgery [Recovered/Resolved]

NARRATIVE: CASE EVENT DATE: 20151124
